FAERS Safety Report 21149537 (Version 1)
Quarter: 2022Q3

REPORT INFORMATION
  Report Type: Spontaneous
  Country: CN (occurrence: CN)
  Receive Date: 20220729
  Receipt Date: 20220729
  Transmission Date: 20221027
  Serious: Yes (Other)
  Sender: FDA-Public Use
  Company Number: None

PATIENT
  Age: 64 Year
  Sex: Male
  Weight: 79.6 kg

DRUGS (11)
  1. GLYCERIN\LECITHIN\MEDIUM-CHAIN TRIGLYCERIDES\SOYBEAN OIL [Suspect]
     Active Substance: GLYCERIN\LECITHIN\MEDIUM-CHAIN TRIGLYCERIDES\SOYBEAN OIL
     Indication: Nutritional supplementation
     Dosage: 400ML ONCE DAILY
     Route: 041
     Dates: start: 20220715, end: 20220719
  2. AMINO ACIDS, SOURCE UNSPECIFIED [Suspect]
     Active Substance: AMINO ACIDS, SOURCE UNSPECIFIED
     Indication: Nutritional supplementation
     Dosage: 500ML ONCE DAILY
     Route: 041
     Dates: start: 20220715, end: 20220719
  3. POTASSIUM CHLORIDE [Suspect]
     Active Substance: POTASSIUM CHLORIDE
     Indication: Nutritional supplementation
     Dosage: 3G ONCE DAILY
     Route: 041
     Dates: start: 20220715, end: 20220719
  4. VITAMINS [Suspect]
     Active Substance: VITAMINS
     Indication: Nutritional supplementation
     Dosage: POWDER INJECTION, 1 BOTTLE ONCE A DAY
     Route: 041
     Dates: start: 20220715, end: 20220719
  5. SODIUM CHLORIDE [Suspect]
     Active Substance: SODIUM CHLORIDE
     Indication: Nutritional supplementation
     Dosage: 50ML ONCE DAILY
     Route: 041
     Dates: start: 20220715, end: 20220719
  6. INSULIN NOS [Suspect]
     Active Substance: INSULIN NOS
     Indication: Nutritional supplementation
     Dosage: 38 UNITS ONCE DAILY
     Route: 041
     Dates: start: 20220715, end: 20220719
  7. .ALPHA.-TOCOPHEROL, DL-\ERGOCALCIFEROL\PHYTONADIONE\VITAMIN A PALMITAT [Suspect]
     Active Substance: .ALPHA.-TOCOPHEROL, DL-\ERGOCALCIFEROL\PHYTONADIONE\VITAMIN A PALMITATE
     Indication: Nutritional supplementation
     Dosage: 10ML ONCE DAILY
     Route: 041
     Dates: start: 20220715, end: 20220719
  8. DEXTROSE [Suspect]
     Active Substance: DEXTROSE
     Indication: Nutritional supplementation
     Dosage: 10% GS, 500ML ONCE DAILY
     Route: 041
     Dates: start: 20220715, end: 20220719
  9. CALCIUM GLUCONATE [Suspect]
     Active Substance: CALCIUM GLUCONATE
     Indication: Nutritional supplementation
     Dosage: 0.3G ONCE DAILY
     Route: 041
     Dates: start: 20220715, end: 20220719
  10. ELECTROLYTES NOS\MINERALS [Suspect]
     Active Substance: ELECTROLYTES NOS\MINERALS
     Indication: Nutritional supplementation
     Dosage: 10ML ONCE DAILY
     Route: 041
     Dates: start: 20220715, end: 20220719
  11. DEXTROSE [Suspect]
     Active Substance: DEXTROSE
     Indication: Nutritional supplementation
     Dosage: 50% GS, 300ML ONCE DAILY
     Route: 041
     Dates: start: 20220715, end: 20220719

REACTIONS (1)
  - Pruritus [Recovering/Resolving]

NARRATIVE: CASE EVENT DATE: 20220719
